FAERS Safety Report 9115540 (Version 1)
Quarter: 2013Q1

REPORT INFORMATION
  Report Type: Spontaneous
  Country: PT (occurrence: PT)
  Receive Date: 20130225
  Receipt Date: 20130225
  Transmission Date: 20140127
  Serious: Yes (Other)
  Sender: FDA-Public Use
  Company Number: PT-MERCK-1302PRT004051

PATIENT
  Age: 41 Year
  Sex: Female

DRUGS (18)
  1. EFAVIRENZ [Suspect]
     Indication: ANTIRETROVIRAL THERAPY
     Dosage: UNK
     Dates: start: 2003
  2. PEGINTRON [Suspect]
     Dosage: UNK
     Dates: start: 2005, end: 2006
  3. RIBAVIRIN [Suspect]
     Indication: ANTIRETROVIRAL THERAPY
     Dosage: 1000 MG
     Dates: start: 2005, end: 2006
  4. RIBAVIRIN [Suspect]
     Dosage: UNK
     Dates: start: 2006, end: 2008
  5. ZIDOVUDINE [Suspect]
     Indication: ANTIRETROVIRAL THERAPY
     Dosage: UNK
     Dates: start: 2003, end: 2005
  6. LAMIVUDINE [Suspect]
     Dosage: UNK
     Dates: start: 2003, end: 2005
  7. NEVIRAPINE [Suspect]
     Dosage: UNK
     Dates: start: 2003, end: 2005
  8. ABACAVIR [Suspect]
     Indication: ANTIRETROVIRAL THERAPY
     Dosage: UNK
     Dates: start: 2005, end: 2008
  9. ABACAVIR [Suspect]
     Dosage: UNK
     Dates: start: 201007
  10. LOPINAVIR (+) RITONAVIR [Suspect]
     Dosage: 100 MG
     Dates: start: 2005, end: 2005
  11. INDINAVIR [Suspect]
     Indication: ANTIRETROVIRAL THERAPY
     Dosage: UNK
     Dates: start: 2005, end: 2006
  12. INDINAVIR [Suspect]
     Dosage: UNK
     Dates: start: 2006
  13. TENOFOVIR [Suspect]
     Indication: ANTIRETROVIRAL THERAPY
     Dosage: UNK
     Dates: start: 2005
  14. TENOFOVIR [Suspect]
     Dosage: UNK
     Dates: start: 201007
  15. SAQUINAVIR [Suspect]
     Indication: ANTIRETROVIRAL THERAPY
     Dosage: UNK
     Dates: start: 200707, end: 2008
  16. SAQUINAVIR [Suspect]
     Dosage: UNK
     Dates: start: 201007
  17. PEGASYS [Suspect]
     Dosage: UNK
     Dates: start: 200804, end: 200805
  18. RITONAVIR [Suspect]
     Dosage: UNK
     Dates: start: 2005

REACTIONS (7)
  - Drug intolerance [Unknown]
  - Hepatic cirrhosis [Unknown]
  - Drug resistance [Unknown]
  - Nausea [Unknown]
  - Vomiting [Unknown]
  - Fatigue [Unknown]
  - Hypertension [Unknown]
